FAERS Safety Report 4302632-8 (Version None)
Quarter: 2004Q1

REPORT INFORMATION
  Report Type: 
  Country: None (occurrence: None)
  Receive Date: 20040224
  Receipt Date: 20040219
  Transmission Date: 20041129
  Serious: Yes (Other)
  Sender: FDA-Public Use
  Company Number: US-BRISTOL-MYERS SQUIBB COMPANY-12512596

PATIENT
  Age: 73 Year
  Sex: Female
  Weight: 61 kg

DRUGS (5)
  1. AVAPRO [Suspect]
     Indication: HYPERTENSION
     Dosage: ^ABOUT 5 YEARS^
     Route: 048
  2. FOSAMAX [Concomitant]
  3. MULTI-VITAMIN [Concomitant]
  4. IBUPROFEN [Concomitant]
  5. ASPIRIN [Concomitant]

REACTIONS (2)
  - BLOOD SODIUM DECREASED [None]
  - BREAST NEOPLASM [None]
